APPROVED DRUG PRODUCT: ONDANSETRON HYDROCHLORIDE
Active Ingredient: ONDANSETRON HYDROCHLORIDE
Strength: EQ 2MG BASE/ML
Dosage Form/Route: INJECTABLE;INJECTION
Application: A077840 | Product #001
Applicant: HOSPIRA INC
Approved: Jan 19, 2007 | RLD: No | RS: No | Type: DISCN